FAERS Safety Report 4654637-5 (Version None)
Quarter: 2005Q2

REPORT INFORMATION
  Report Type: 
  Country: None (occurrence: None)
  Receive Date: 20050504
  Receipt Date: 20050504
  Transmission Date: 20051028
  Serious: Yes (Hospitalization)
  Sender: FDA-Public Use
  Company Number: None

PATIENT
  Age: 80 Year
  Sex: Male
  Weight: 97 kg

DRUGS (2)
  1. SIMVASTATIN [Suspect]
     Indication: BLOOD CHOLESTEROL
     Dosage: 40MG  DAILY  ORAL
     Route: 048
  2. CLARITHROMYCIN [Suspect]
     Indication: RESPIRATORY DISORDER
     Dosage: ORAL
     Route: 048

REACTIONS (2)
  - RESPIRATORY DISORDER [None]
  - RHABDOMYOLYSIS [None]
